FAERS Safety Report 11132511 (Version 3)
Quarter: 2015Q3

REPORT INFORMATION
  Report Type: Spontaneous
  Country: US (occurrence: US)
  Receive Date: 20150522
  Receipt Date: 20150914
  Transmission Date: 20151125
  Serious: Yes (Other)
  Sender: FDA-Public Use
  Company Number: US-ELI_LILLY_AND_COMPANY-US201504009087

PATIENT
  Sex: Female

DRUGS (1)
  1. CYMBALTA [Suspect]
     Active Substance: DULOXETINE HYDROCHLORIDE
     Indication: PRODUCT USED FOR UNKNOWN INDICATION
     Dosage: UNK, UNKNOWN
     Route: 065
     Dates: start: 20140714, end: 20140924

REACTIONS (9)
  - Confusional state [Unknown]
  - Visual field defect [Unknown]
  - Depression [Unknown]
  - Eosinophil count increased [Unknown]
  - Irritability [Unknown]
  - Fall [Unknown]
  - Nightmare [Unknown]
  - Balance disorder [Unknown]
  - Amnesia [Unknown]
